FAERS Safety Report 7206574-X (Version None)
Quarter: 2011Q1

REPORT INFORMATION
  Report Type: 
  Country: None (occurrence: None)
  Receive Date: 20110103
  Receipt Date: 20101228
  Transmission Date: 20110831
  Serious: Yes (Hospitalization)
  Sender: FDA-Public Use
  Company Number: US-JNJFOC-20101208701

PATIENT
  Sex: Female
  Weight: 77.11 kg

DRUGS (13)
  1. DURAGESIC-50 [Suspect]
     Indication: PAIN
     Dosage: NDC#50458-092-05
     Route: 062
  2. NEURONTIN [Concomitant]
     Indication: NEUROPATHY PERIPHERAL
     Route: 048
  3. REQUIP [Concomitant]
     Indication: RESTLESS LEGS SYNDROME
     Route: 048
  4. IMITREX [Concomitant]
     Indication: MIGRAINE
     Route: 048
  5. GLUMETZA [Concomitant]
     Indication: DIABETES MELLITUS
     Route: 048
  6. LASIX [Concomitant]
     Indication: ABDOMINAL DISTENSION
     Route: 048
  7. LUNESTA [Concomitant]
     Indication: SLEEP DISORDER
     Route: 048
  8. ULORIC [Concomitant]
     Indication: GOUT
     Route: 048
  9. HUMIRA [Concomitant]
     Indication: PSORIATIC ARTHROPATHY
     Route: 058
  10. BACLOFEN [Concomitant]
     Indication: NEURALGIA
     Route: 048
  11. JANUVIA [Concomitant]
     Indication: DIABETES MELLITUS
     Route: 048
  12. LEXAPRO [Concomitant]
     Indication: DEPRESSION
     Dosage: 20MG 2 PER DAY
     Route: 048
  13. COLCHICINE [Concomitant]
     Indication: GOUT
     Route: 048

REACTIONS (3)
  - ARTHROPATHY [None]
  - INFECTION [None]
  - INCORRECT DRUG ADMINISTRATION DURATION [None]
